FAERS Safety Report 20361518 (Version 2)
Quarter: 2022Q1

REPORT INFORMATION
  Report Type: Spontaneous
  Country: US (occurrence: US)
  Receive Date: 20220121
  Receipt Date: 20220121
  Transmission Date: 20220424
  Serious: Yes (Hospitalization)
  Sender: FDA-Public Use
  Company Number: US-CELGENE-USA-20220103987

PATIENT
  Sex: Male
  Weight: 136.20 kg

DRUGS (1)
  1. REVLIMID [Suspect]
     Active Substance: LENALIDOMIDE
     Indication: Non-Hodgkin^s lymphoma
     Dosage: 18.75 MILLIGRAM
     Route: 048
     Dates: start: 202112

REACTIONS (3)
  - Lymphadenopathy [Unknown]
  - Choking sensation [Unknown]
  - White blood cell count decreased [Unknown]
